FAERS Safety Report 6058436-1 (Version None)
Quarter: 2009Q1

REPORT INFORMATION
  Report Type: 
  Country: None (occurrence: None)
  Receive Date: 20090130
  Receipt Date: 20090127
  Transmission Date: 20090719
  Serious: Yes (Death)
  Sender: FDA-Public Use
  Company Number: CA-NOVOPROD-283547

PATIENT

DRUGS (1)
  1. NIASTASE [Suspect]
     Indication: HAEMORRHAGE

REACTIONS (1)
  - CONCOMITANT DISEASE PROGRESSION [None]
